FAERS Safety Report 20237538 (Version 1)
Quarter: 2021Q4

REPORT INFORMATION
  Report Type: Report from Study
  Country: US (occurrence: US)
  Receive Date: 20211228
  Receipt Date: 20211228
  Transmission Date: 20220303
  Serious: Yes (Death)
  Sender: FDA-Public Use
  Company Number: US-TEVA-2021-US-1993234

PATIENT
  Age: 53 Year
  Sex: Female

DRUGS (1)
  1. ALMOTRIPTAN [Suspect]
     Active Substance: ALMOTRIPTAN
     Indication: Intentional overdose
     Route: 048

REACTIONS (1)
  - Intentional overdose [Fatal]
